FAERS Safety Report 25289220 (Version 1)
Quarter: 2025Q2

REPORT INFORMATION
  Report Type: Report from Study
  Country: IT (occurrence: IT)
  Receive Date: 20250509
  Receipt Date: 20250509
  Transmission Date: 20250716
  Serious: No
  Sender: SANDOZ
  Company Number: IT-SANDOZ-SDZ2024IT076043

PATIENT
  Age: 13 Year
  Sex: Male
  Weight: 34 kg

DRUGS (2)
  1. OMNITROPE [Suspect]
     Active Substance: SOMATROPIN
     Dosage: 1.5 MG (MILLIGRAM), LIQUID
     Route: 058
     Dates: start: 20240301
  2. OMNITROPE [Suspect]
     Active Substance: SOMATROPIN
     Indication: Growth hormone deficiency
     Dosage: 1.2 MG (MILLIGRAM), LIQUID
     Route: 058
     Dates: start: 20240301

REACTIONS (5)
  - Drug dose omission by device [Unknown]
  - Device mechanical issue [Unknown]
  - Device mechanical issue [Unknown]
  - Drug dose omission by device [Unknown]
  - Therapy interrupted [Unknown]

NARRATIVE: CASE EVENT DATE: 20240822
